FAERS Safety Report 5405217-5 (Version None)
Quarter: 2007Q3

REPORT INFORMATION
  Report Type: 
  Country: None (occurrence: None)
  Receive Date: 20070803
  Receipt Date: 20070724
  Transmission Date: 20080115
  Serious: Yes (Hospitalization)
  Sender: FDA-Public Use
  Company Number: US-ABBOTT-07P-163-0375840-00

PATIENT
  Sex: Female
  Weight: 95.34 kg

DRUGS (2)
  1. HUMIRA [Suspect]
     Indication: PSORIATIC ARTHROPATHY
     Route: 058
     Dates: start: 20060401, end: 20070101
  2. CYCLOSPORINE [Concomitant]
     Indication: DRUG USE FOR UNKNOWN INDICATION
     Dates: start: 20010101

REACTIONS (6)
  - ABDOMINAL SYMPTOM [None]
  - CARDIAC FAILURE [None]
  - CD4 LYMPHOCYTES ABNORMAL [None]
  - GRANULOMA [None]
  - NECROSIS [None]
  - TUBERCULOSIS [None]
